FAERS Safety Report 5506167-6 (Version None)
Quarter: 2007Q4

REPORT INFORMATION
  Report Type: 
  Country: None (occurrence: None)
  Receive Date: 20071102
  Receipt Date: 20071102
  Transmission Date: 20080405
  Serious: Yes (Life-Threatening, Hospitalization)
  Sender: FDA-Public Use
  Company Number: None

PATIENT
  Age: 59 Year
  Sex: Female
  Weight: 94.8018 kg

DRUGS (1)
  1. GLIMEPIRIDE [Suspect]
     Indication: BLOOD GLUCOSE ABNORMAL
     Dosage: 1 TABLET TWICE DAILY PO
     Route: 048
     Dates: start: 20070909, end: 20070928

REACTIONS (9)
  - CARDIAC FAILURE CONGESTIVE [None]
  - CARDIOMYOPATHY [None]
  - HEADACHE [None]
  - HUNGER [None]
  - INCREASED UPPER AIRWAY SECRETION [None]
  - MYOCARDIAL INFARCTION [None]
  - THIRST [None]
  - URINE OUTPUT INCREASED [None]
  - VISION BLURRED [None]
